FAERS Safety Report 7469100-6 (Version None)
Quarter: 2011Q2

REPORT INFORMATION
  Report Type: 
  Country: None (occurrence: None)
  Receive Date: 20110510
  Receipt Date: 20110425
  Transmission Date: 20111010
  Serious: Yes (Hospitalization, Disabling, Other)
  Sender: FDA-Public Use
  Company Number: CA-ELI_LILLY_AND_COMPANY-CA201104006717

PATIENT
  Sex: Male

DRUGS (8)
  1. FLURAZEPAM [Concomitant]
  2. WELLBUTRIN [Concomitant]
  3. ZYPREXA [Suspect]
     Dosage: 10 MG, EACH EVENING
     Dates: start: 20001123
  4. ZYPREXA [Suspect]
     Indication: BIPOLAR I DISORDER
     Dosage: 7.5 MG, EACH EVENING
     Dates: start: 20001109
  5. LITHIUM [Concomitant]
  6. DIVALPROEX SODIUM [Concomitant]
  7. AMITRIPTYLINE HCL [Concomitant]
  8. RISPERDAL [Concomitant]

REACTIONS (18)
  - HYPERTENSION [None]
  - RENAL FAILURE ACUTE [None]
  - PARALYSIS [None]
  - PSYCHOMOTOR SKILLS IMPAIRED [None]
  - SINUS TACHYCARDIA [None]
  - DYSARTHRIA [None]
  - COGNITIVE DISORDER [None]
  - CARDIOVASCULAR DISORDER [None]
  - DYSLIPIDAEMIA [None]
  - DIABETIC KETOACIDOSIS [None]
  - TYPE 2 DIABETES MELLITUS [None]
  - PERIPHERAL NERVE LESION [None]
  - POLYNEUROPATHY [None]
  - CHOLESTASIS [None]
  - ENCEPHALOPATHY [None]
  - DIABETIC COMA [None]
  - ALLODYNIA [None]
  - COMPLEX REGIONAL PAIN SYNDROME [None]
